FAERS Safety Report 24446222 (Version 4)
Quarter: 2024Q4

REPORT INFORMATION
  Report Type: Report from Study
  Country: CA (occurrence: CA)
  Receive Date: 20241016
  Receipt Date: 20241223
  Transmission Date: 20250115
  Serious: Yes (Hospitalization, Other)
  Sender: HLS THERAPEUTICS
  Company Number: CA-HLS-202400616

PATIENT
  Age: 25 Year
  Sex: Male
  Weight: 68 kg

DRUGS (38)
  1. CLOZARIL [Suspect]
     Active Substance: CLOZAPINE
     Indication: Mental disorder
     Route: 048
     Dates: start: 20240125, end: 20240602
  2. CLOZARIL [Suspect]
     Active Substance: CLOZAPINE
     Indication: Mental disorder
     Dosage: EVERY NIGHT AT BEDTIME.
     Route: 048
     Dates: start: 20240131
  3. CLOZARIL [Suspect]
     Active Substance: CLOZAPINE
     Indication: Mental disorder
     Dosage: EVERY NIGHT AT BEDTIME.
     Route: 048
     Dates: start: 20240202
  4. CLOZARIL [Suspect]
     Active Substance: CLOZAPINE
     Indication: Mental disorder
     Dosage: DAILY.
     Route: 048
     Dates: start: 20240204
  5. CLOZARIL [Suspect]
     Active Substance: CLOZAPINE
     Indication: Mental disorder
     Dosage: EVERY NIGHT AT BEDTIME.
     Route: 048
     Dates: start: 20240131
  6. CLOZARIL [Suspect]
     Active Substance: CLOZAPINE
     Indication: Mental disorder
     Dosage: DAILY.
     Route: 048
     Dates: start: 20240202
  7. CLOZARIL [Suspect]
     Active Substance: CLOZAPINE
     Indication: Mental disorder
     Dosage: EVERY NIGHT AT BEDTIME.
     Route: 048
     Dates: start: 20240202
  8. ZUCLOPENTHIXOL [Concomitant]
     Active Substance: ZUCLOPENTHIXOL
     Indication: Product used for unknown indication
     Dosage: EVERY NOON SCHEDULE.
     Route: 048
     Dates: start: 20240903
  9. ZUCLOPENTHIXOL [Concomitant]
     Active Substance: ZUCLOPENTHIXOL
     Indication: Product used for unknown indication
     Dosage: EVERY NIGHT AT BEDTIME SCHEDULED.
     Route: 048
     Dates: start: 20240916
  10. ZYPREXA ZYDIS [Concomitant]
     Active Substance: OLANZAPINE
     Indication: Agitation
     Dosage: EVERY NIGHT AT BEDTIME.
     Route: 048
     Dates: start: 20240131
  11. ZYPREXA ZYDIS [Concomitant]
     Active Substance: OLANZAPINE
     Indication: Psychotic disorder
     Dosage: EVERY NIGHT AT BEDTIME.
     Route: 048
     Dates: start: 20240131
  12. ZYPREXA ZYDIS [Concomitant]
     Active Substance: OLANZAPINE
     Indication: Agitation
     Dosage: EVERY NIGHT AT BEDTIME.
     Route: 048
     Dates: start: 20240202
  13. ZYPREXA ZYDIS [Concomitant]
     Active Substance: OLANZAPINE
     Indication: Psychotic disorder
     Dosage: EVERY NIGHT AT BEDTIME.
     Route: 048
     Dates: start: 20240202
  14. ZYPREXA ZYDIS [Concomitant]
     Active Substance: OLANZAPINE
     Indication: Agitation
     Dosage: EVERY NIGHT AT BEDTIME.
     Route: 048
     Dates: start: 20231219
  15. ZYPREXA ZYDIS [Concomitant]
     Active Substance: OLANZAPINE
     Indication: Psychotic disorder
     Dosage: EVERY NIGHT AT BEDTIME.
     Route: 048
     Dates: start: 20231219
  16. ZYPREXA ZYDIS [Concomitant]
     Active Substance: OLANZAPINE
     Indication: Agitation
     Dosage: EVERY NIGHT AT BEDTIME.
     Route: 048
     Dates: start: 20240201
  17. ZYPREXA ZYDIS [Concomitant]
     Active Substance: OLANZAPINE
     Indication: Psychotic disorder
     Dosage: EVERY NIGHT AT BEDTIME.
     Route: 048
     Dates: start: 20240201
  18. ZYPREXA ZYDIS [Concomitant]
     Active Substance: OLANZAPINE
     Indication: Agitation
     Dosage: EVERY 6 HOURS AS NEEDED.
     Route: 048
     Dates: start: 20231218
  19. ZYPREXA ZYDIS [Concomitant]
     Active Substance: OLANZAPINE
     Indication: Psychotic disorder
     Dosage: EVERY 6 HOURS AS NEEDED.
     Route: 048
     Dates: start: 20231218
  20. ZYPREXA ZYDIS [Concomitant]
     Active Substance: OLANZAPINE
     Indication: Agitation
     Dosage: EVERY NIGHT AT BEDTIME.
     Route: 048
     Dates: start: 20240131
  21. ZYPREXA ZYDIS [Concomitant]
     Active Substance: OLANZAPINE
     Indication: Psychotic disorder
     Dosage: EVERY NIGHT AT BEDTIME.
     Route: 048
     Dates: start: 20240131
  22. ZYPREXA ZYDIS [Concomitant]
     Active Substance: OLANZAPINE
     Indication: Agitation
     Dosage: EVERY NIGHT AT BEDTIME.
     Route: 048
     Dates: start: 20240204
  23. ZYPREXA ZYDIS [Concomitant]
     Active Substance: OLANZAPINE
     Indication: Psychotic disorder
     Dosage: EVERY NIGHT AT BEDTIME.
     Route: 048
     Dates: start: 20240204
  24. ZYPREXA ZYDIS [Concomitant]
     Active Substance: OLANZAPINE
     Indication: Agitation
     Dosage: EVERY NIGHT AT BEDTIME.
     Route: 048
     Dates: start: 20240131
  25. ZYPREXA ZYDIS [Concomitant]
     Active Substance: OLANZAPINE
     Indication: Psychotic disorder
     Dosage: EVERY NIGHT AT BEDTIME.
     Route: 048
     Dates: start: 20240131
  26. ATIVAN [Concomitant]
     Active Substance: LORAZEPAM
     Indication: Anxiety
     Dosage: FOUR TIMES A DAY AS NEEDED.
     Route: 048
     Dates: start: 20231219
  27. ATIVAN [Concomitant]
     Active Substance: LORAZEPAM
     Indication: Anxiety
     Dosage: EVERY 2 HOURS AS NEEDED.
     Route: 030
     Dates: start: 20231218
  28. ATIVAN [Concomitant]
     Active Substance: LORAZEPAM
     Indication: Anxiety
     Dosage: EVERY 2 HOURS AS NEEDED.
     Route: 048
     Dates: start: 20231218
  29. LIDOCAINE\PRILOCAINE [Concomitant]
     Active Substance: LIDOCAINE\PRILOCAINE
     Indication: Product used for unknown indication
     Dosage: 1 PATCH AS NEEDED. ONE HOUR PRIOR TO LAIS
     Route: 062
     Dates: start: 20240510
  30. TYLENOL [Concomitant]
     Active Substance: ACETAMINOPHEN
     Indication: Pain
     Dosage: EVERY 4 HOURS AS PER NEEDED.
     Route: 048
     Dates: start: 20231218
  31. ADVIL [Concomitant]
     Active Substance: IBUPROFEN
     Indication: Product used for unknown indication
     Dosage: EVERY 6 HOURS AS NEEDED.
     Route: 048
     Dates: start: 20231226
  32. HALDOL [Concomitant]
     Active Substance: HALOPERIDOL
     Indication: Product used for unknown indication
     Dosage: EVERY 2 HOURS AS NEEDED.
     Route: 048
     Dates: start: 20231218
  33. HALDOL [Concomitant]
     Active Substance: HALOPERIDOL
     Indication: Product used for unknown indication
     Dosage: EVERY 2 HOURS AS NEEDED.
     Route: 030
     Dates: start: 20231218
  34. Congentin [Concomitant]
     Indication: Product used for unknown indication
     Dosage: 1-2 MG THREE TIMES A DAY AS NEEDED.
     Route: 030
     Dates: start: 20231218
  35. Congentin [Concomitant]
     Indication: Product used for unknown indication
     Dosage: 1-2 MG THREE TIMES A DAY AS NEEDED.
     Route: 048
     Dates: start: 20231218
  36. INVEGA SUSTENNA [Concomitant]
     Active Substance: PALIPERIDONE PALMITATE
     Indication: Product used for unknown indication
     Dosage: EVERY 21 DAYS.
     Route: 030
     Dates: start: 20231219
  37. IMOVANE [Concomitant]
     Active Substance: ZOPICLONE
     Indication: Product used for unknown indication
     Dosage: EVERY NIGHT AT BEDTIME AS NEEDED.
     Route: 048
     Dates: start: 20231218
  38. POLYETHYLENE GLYCOL 3350 [Concomitant]
     Active Substance: POLYETHYLENE GLYCOL 3350
     Indication: Product used for unknown indication
     Dosage: DAILY AS NEEDED.
     Route: 048

REACTIONS (10)
  - Chest pain [Unknown]
  - Ejection fraction decreased [Unknown]
  - Bradycardia [Unknown]
  - Dizziness [Recovering/Resolving]
  - Malaise [Recovering/Resolving]
  - Hypotension [Not Recovered/Not Resolved]
  - Adverse drug reaction [Unknown]
  - Off label use [Unknown]
  - Tachycardia [Unknown]
  - Asthenia [Unknown]

NARRATIVE: CASE EVENT DATE: 20240204
